FAERS Safety Report 13336904 (Version 2)
Quarter: 2017Q3

REPORT INFORMATION
  Report Type: Spontaneous
  Country: US (occurrence: US)
  Receive Date: 20170315
  Receipt Date: 20170821
  Transmission Date: 20171127
  Serious: No
  Sender: FDA-Public Use
  Company Number: US-PFIZER INC-2017107036

PATIENT
  Age: 57 Year
  Sex: Female

DRUGS (1)
  1. SULFASALAZINE. [Suspect]
     Active Substance: SULFASALAZINE
     Dosage: 1 TAB TWICE DAILY (MAX 1 BID)
     Dates: start: 201512, end: 201604

REACTIONS (4)
  - Rash [Unknown]
  - Drug hypersensitivity [Unknown]
  - Photosensitivity reaction [Unknown]
  - Dry mouth [Unknown]
